FAERS Safety Report 13002186 (Version 1)
Quarter: 2016Q4

REPORT INFORMATION
  Report Type: Spontaneous
  Country: BR (occurrence: BR)
  Receive Date: 20161206
  Receipt Date: 20161206
  Transmission Date: 20170207
  Serious: Yes (Other)
  Sender: FDA-Public Use
  Company Number: BR-GLAXOSMITHKLINE-BR2016GSK179256

PATIENT
  Sex: Male
  Weight: 25 kg

DRUGS (5)
  1. AEROLIN [Suspect]
     Active Substance: ALBUTEROL
     Indication: ASTHMA
     Dosage: 3 PUFF(S), 6D
     Route: 055
     Dates: end: 20161122
  2. AEROLIN [Suspect]
     Active Substance: ALBUTEROL
     Indication: BRONCHITIS
  3. CLENIL [Suspect]
     Active Substance: BECLOMETHASONE DIPROPIONATE
     Indication: COUGH
     Dosage: 3 PUFF(S), BID
     Route: 055
  4. CLENIL [Suspect]
     Active Substance: BECLOMETHASONE DIPROPIONATE
     Indication: DYSPNOEA
  5. CLENIL [Suspect]
     Active Substance: BECLOMETHASONE DIPROPIONATE
     Indication: INFLUENZA

REACTIONS (4)
  - Overdose [Not Recovered/Not Resolved]
  - Influenza [Recovered/Resolved]
  - Dyspnoea [Unknown]
  - Cardiac arrest [Unknown]
